FAERS Safety Report 17445300 (Version 2)
Quarter: 2020Q1

REPORT INFORMATION
  Report Type: Report from Study
  Country: CO (occurrence: CO)
  Receive Date: 20200221
  Receipt Date: 20200316
  Transmission Date: 20200409
  Serious: Yes (Death, Life-Threatening, Hospitalization, Other)
  Sender: FDA-Public Use
  Company Number: CO-AMGEN-COLSL2019211560

PATIENT
  Age: 71 Year
  Sex: Male

DRUGS (1)
  1. KYPROLIS [Suspect]
     Active Substance: CARFILZOMIB
     Indication: PLASMA CELL MYELOMA
     Dosage: 60 MILLIGRAM (OTHER)
     Route: 042
     Dates: start: 20181109, end: 20200131

REACTIONS (5)
  - Globulins decreased [Not Recovered/Not Resolved]
  - White blood cell count decreased [Unknown]
  - Red blood cell count decreased [Unknown]
  - Thrombocytopenia [Not Recovered/Not Resolved]
  - Respiratory arrest [Fatal]

NARRATIVE: CASE EVENT DATE: 20191213
